FAERS Safety Report 8428688-9 (Version None)
Quarter: 2012Q2

REPORT INFORMATION
  Report Type: 
  Country: None (occurrence: None)
  Receive Date: 20120605
  Receipt Date: 20120521
  Transmission Date: 20120825
  Serious: Yes (Other)
  Sender: FDA-Public Use
  Company Number: 2012P1019080

PATIENT
  Age: 58 Year
  Sex: Female
  Weight: 62.5964 kg

DRUGS (21)
  1. CRYSTALLINE VIT B12 INJ [Concomitant]
  2. ACIPHEX [Concomitant]
  3. WELLBUTRIN SR [Concomitant]
  4. SIMVASTATIN [Concomitant]
  5. VOLTAREN [Concomitant]
  6. FENTANYL-75 [Suspect]
  7. OXYCODONE HCL [Concomitant]
  8. COCCYX INJECTION [Concomitant]
  9. PENTASA [Concomitant]
  10. POTASSIUM ACETATE [Concomitant]
  11. ALPRAZOLAM [Concomitant]
  12. CLONAZEPAM [Concomitant]
  13. FENTANYL-75 [Suspect]
     Indication: PAIN
     Dates: end: 20110101
  14. LEVOXYL [Concomitant]
  15. PROBIOTIC PEARLS [Concomitant]
  16. FISH OIL [Concomitant]
  17. FENTANYL-100 [Suspect]
     Indication: PAIN
     Dosage: 1 PATCH;Q48HR, TDER
     Route: 062
     Dates: start: 20110501
  18. CHLORIDE [Concomitant]
  19. CARAFATE ELIXIR [Concomitant]
  20. VITAMIN D 1000 IU [Concomitant]
  21. CYCLOBENZAPRINE [Concomitant]

REACTIONS (12)
  - PAIN [None]
  - OSTEOARTHRITIS [None]
  - PRODUCT ADHESION ISSUE [None]
  - EMOTIONAL DISORDER [None]
  - WRONG TECHNIQUE IN DRUG USAGE PROCESS [None]
  - PRE-EXISTING DISEASE [None]
  - MENTAL IMPAIRMENT [None]
  - CONDITION AGGRAVATED [None]
  - BREAKTHROUGH PAIN [None]
  - DIZZINESS [None]
  - CARTILAGE INJURY [None]
  - DRUG INEFFECTIVE [None]
